FAERS Safety Report 8112021-6 (Version None)
Quarter: 2012Q1

REPORT INFORMATION
  Report Type: 
  Country: None (occurrence: None)
  Receive Date: 20120203
  Receipt Date: 20120130
  Transmission Date: 20120608
  Serious: Yes (Other)
  Sender: FDA-Public Use
  Company Number: US-PFIZER INC-2012024812

PATIENT
  Sex: Female
  Weight: 73.469 kg

DRUGS (9)
  1. CARVEDILOL PHOSPHATE [Suspect]
     Indication: CARDIAC DISORDER
     Dosage: 40 MG, DAILY
  2. LIPITOR [Suspect]
     Dosage: 40 MG, DAILY
  3. LISINOPRIL [Suspect]
     Indication: BLOOD PRESSURE ABNORMAL
     Dosage: 40 MG, DAILY
     Dates: start: 19960801
  4. SIMVASTATIN [Suspect]
     Indication: BLOOD CHOLESTEROL ABNORMAL
     Dosage: 40 MG, DAILY
     Dates: start: 19960401, end: 20120128
  5. VITAMIN TAB [Concomitant]
     Dosage: UNK
  6. ASPIRIN [Concomitant]
     Dosage: 325 MG, DAILY
     Route: 048
  7. LIPITOR [Suspect]
     Indication: BLOOD CHOLESTEROL ABNORMAL
     Dosage: 80 MG, DAILY
     Route: 048
     Dates: start: 20120105, end: 20120128
  8. NORVASC [Suspect]
     Indication: BLOOD PRESSURE ABNORMAL
     Dosage: 5 MG, DAILY
  9. PRAVASTATIN [Suspect]
     Indication: BLOOD CHOLESTEROL ABNORMAL
     Dosage: 80 MG, DAILY
     Dates: start: 20110101, end: 20120104

REACTIONS (9)
  - SKIN REACTION [None]
  - CARDIAC DISORDER [None]
  - PRURITUS [None]
  - DRUG HYPERSENSITIVITY [None]
  - BLOOD CHOLESTEROL INCREASED [None]
  - DRUG INEFFECTIVE [None]
  - WEIGHT DECREASED [None]
  - HYPERSENSITIVITY [None]
  - FATIGUE [None]
